FAERS Safety Report 23170575 (Version 1)
Quarter: 2023Q4

REPORT INFORMATION
  Report Type: Spontaneous
  Country: US (occurrence: US)
  Receive Date: 20231110
  Receipt Date: 20231110
  Transmission Date: 20240109
  Serious: No
  Sender: FDA-Public Use
  Company Number: US-drreddys-SPO/USA/23/0180628

PATIENT
  Sex: Female

DRUGS (1)
  1. SUMATRIPTAN [Suspect]
     Active Substance: SUMATRIPTAN
     Indication: Product used for unknown indication
     Dosage: 6 MG/0.5 ML (2 PRE-FILLED  SYRINGES PER CARTON)

REACTIONS (3)
  - Administration site bruise [Unknown]
  - Administration site haemorrhage [Unknown]
  - Device failure [Unknown]
